FAERS Safety Report 9718723 (Version 1)
Quarter: 2013Q4

REPORT INFORMATION
  Report Type: Spontaneous
  Country: DK (occurrence: CH)
  Receive Date: 20131127
  Receipt Date: 20131127
  Transmission Date: 20140711
  Serious: Yes (Other)
  Sender: FDA-Public Use
  Company Number: CH-FRI-1000051795

PATIENT
  Sex: Female

DRUGS (2)
  1. ESCITALOPRAM [Suspect]
     Dosage: 5 MG
     Route: 048
     Dates: start: 20131017, end: 20131018
  2. TRITTICO [Concomitant]
     Indication: SLEEP DISORDER
     Dosage: 25 MG
     Route: 048
     Dates: end: 20131016

REACTIONS (5)
  - Serotonin syndrome [Recovered/Resolved]
  - Nausea [Recovered/Resolved]
  - Tachycardia [Recovered/Resolved]
  - Sleep disorder [Recovered/Resolved]
  - Tremor [Recovered/Resolved]
